FAERS Safety Report 23645806 (Version 1)
Quarter: 2024Q1

REPORT INFORMATION
  Report Type: Spontaneous
  Country: US (occurrence: US)
  Receive Date: 20240319
  Receipt Date: 20240319
  Transmission Date: 20240410
  Serious: No
  Sender: FDA-Public Use
  Company Number: US-002147023-NVSC2024US054852

PATIENT

DRUGS (1)
  1. VALSARTAN [Suspect]
     Active Substance: VALSARTAN
     Indication: Product used for unknown indication
     Dosage: UNK
     Route: 065

REACTIONS (11)
  - Feeling abnormal [Unknown]
  - Dyspnoea [Unknown]
  - Somnolence [Unknown]
  - Confusional state [Unknown]
  - Dry skin [Unknown]
  - Anxiety [Unknown]
  - Fatigue [Unknown]
  - Dizziness [Unknown]
  - Arthralgia [Unknown]
  - Headache [Unknown]
  - Blood pressure measurement [Recovered/Resolved]
